FAERS Safety Report 7262172-3 (Version None)
Quarter: 2011Q1

REPORT INFORMATION
  Report Type: 
  Country: None (occurrence: None)
  Receive Date: 20110130
  Receipt Date: 20101213
  Transmission Date: 20110831
  Serious: No
  Sender: FDA-Public Use
  Company Number: US-ABBOTT-10P-163-0691612-00

PATIENT
  Sex: Female
  Weight: 95.34 kg

DRUGS (11)
  1. MELOXICAM [Concomitant]
     Indication: PSORIATIC ARTHROPATHY
  2. FOLIC ACID [Concomitant]
     Indication: VITAMIN SUPPLEMENTATION
  3. ULTRAM [Concomitant]
     Indication: PAIN
  4. CLONIDINE [Concomitant]
     Indication: ANXIETY
  5. SYNTHROID [Concomitant]
     Indication: HYPOTHYROIDISM
  6. SOMA [Concomitant]
     Indication: FIBROMYALGIA
  7. HUMIRA [Suspect]
     Indication: PSORIATIC ARTHROPATHY
     Dates: start: 20100901
  8. AMITRIPTYLINE HCL [Concomitant]
     Indication: FIBROMYALGIA
  9. METHOTREXATE [Concomitant]
     Indication: PSORIATIC ARTHROPATHY
  10. VICODIN [Concomitant]
     Indication: PAIN
  11. PROZAC [Concomitant]
     Indication: ANXIETY

REACTIONS (3)
  - OROPHARYNGEAL PAIN [None]
  - NASAL CONGESTION [None]
  - NASOPHARYNGITIS [None]
